FAERS Safety Report 9168707 (Version 1)
Quarter: 2013Q1

REPORT INFORMATION
  Report Type: Spontaneous
  Country: GB (occurrence: None)
  Receive Date: 20130308
  Receipt Date: 20130308
  Transmission Date: 20140127
  Serious: Yes (Other)
  Sender: FDA-Public Use
  Company Number: SYM-2013-01388

PATIENT
  Age: 53 Year
  Sex: Female

DRUGS (2)
  1. DILTIAZEM HYDROCHLORIDE [Suspect]
     Indication: HYPERTENSION
     Dosage: IN 1 D
     Dates: start: 20130127
  2. FUROSEMIDE [Concomitant]

REACTIONS (5)
  - Dyspnoea [None]
  - Muscular weakness [None]
  - Dizziness [None]
  - Headache [None]
  - Underdose [None]
